FAERS Safety Report 9700243 (Version 3)
Quarter: 2013Q4

REPORT INFORMATION
  Report Type: Spontaneous
  Country: GB (occurrence: GB)
  Receive Date: 20131121
  Receipt Date: 20131127
  Transmission Date: 20140711
  Serious: Yes (Other)
  Sender: FDA-Public Use
  Company Number: GB-009507513-1310GBR010975

PATIENT
  Age: 21 Year
  Sex: Female
  Weight: 123 kg

DRUGS (2)
  1. NEXPLANON [Suspect]
     Dosage: LEFT ARM
     Route: 058
     Dates: start: 20120528, end: 20130119
  2. NEXPLANON [Suspect]
     Dosage: UNK
     Route: 058
     Dates: start: 201301

REACTIONS (8)
  - Device breakage [Recovered/Resolved]
  - Rash [Unknown]
  - Swelling [Unknown]
  - Mass [Unknown]
  - Pruritus [Unknown]
  - Pain [Unknown]
  - Device allergy [Unknown]
  - Urticaria [Unknown]
